FAERS Safety Report 9606141 (Version 1)
Quarter: 2013Q4

REPORT INFORMATION
  Report Type: Spontaneous
  Country: US (occurrence: US)
  Receive Date: 20131008
  Receipt Date: 20131008
  Transmission Date: 20140711
  Serious: No
  Sender: FDA-Public Use
  Company Number: US-AMGEN-USASP2013043476

PATIENT
  Age: 47 Year
  Sex: Female

DRUGS (3)
  1. PROLIA [Suspect]
     Indication: PRODUCT USED FOR UNKNOWN INDICATION
     Dosage: UNK
  2. ESTRADIOL [Concomitant]
  3. PROVENTIL                          /00139501/ [Concomitant]

REACTIONS (2)
  - Back pain [Unknown]
  - Pain in extremity [Unknown]
